FAERS Safety Report 19887829 (Version 1)
Quarter: 2021Q3

REPORT INFORMATION
  Report Type: Spontaneous
  Country: US (occurrence: US)
  Receive Date: 20210927
  Receipt Date: 20210927
  Transmission Date: 20211014
  Serious: Yes (Other)
  Sender: FDA-Public Use
  Company Number: None

PATIENT
  Age: 37 Year
  Sex: Female

DRUGS (1)
  1. KESIMPTA [Suspect]
     Active Substance: OFATUMUMAB
     Dosage: ?          OTHER FREQUENCY:OTHER;?
     Route: 058
     Dates: start: 20210916

REACTIONS (4)
  - Cough [None]
  - Nasal discomfort [None]
  - Dyspnoea [None]
  - Increased viscosity of upper respiratory secretion [None]

NARRATIVE: CASE EVENT DATE: 20210926
